FAERS Safety Report 11878265 (Version 1)
Quarter: 2015Q4

REPORT INFORMATION
  Report Type: Spontaneous
  Country: US (occurrence: None)
  Receive Date: 20151229
  Receipt Date: 20151229
  Transmission Date: 20160305
  Serious: No
  Sender: FDA-Public Use
  Company Number: None

PATIENT
  Age: 71 Year
  Sex: Male

DRUGS (1)
  1. METHOTREXATE 25 MG/ML 2 ML VIALS MDV HOSPIRA [Suspect]
     Active Substance: METHOTREXATE
     Route: 030
     Dates: start: 20150401

REACTIONS (3)
  - Accidental exposure to product [None]
  - Device malfunction [None]
  - Product quality issue [None]

NARRATIVE: CASE EVENT DATE: 20151223
